FAERS Safety Report 7958851-2 (Version None)
Quarter: 2011Q4

REPORT INFORMATION
  Report Type: 
  Country: None (occurrence: None)
  Receive Date: 20111206
  Receipt Date: 20111128
  Transmission Date: 20120403
  Serious: Yes (Other)
  Sender: FDA-Public Use
  Company Number: FR-UCBSA-046668

PATIENT
  Age: 22 Year
  Sex: Female

DRUGS (1)
  1. KEPPRA [Suspect]
     Indication: IDIOPATHIC GENERALISED EPILEPSY
     Dosage: DAILY DOSE-3 G
     Route: 048

REACTIONS (2)
  - CAESAREAN SECTION [None]
  - PREGNANCY [None]
